FAERS Safety Report 11242843 (Version 1)
Quarter: 2015Q3

REPORT INFORMATION
  Report Type: Spontaneous
  Country: GB (occurrence: GB)
  Receive Date: 20150707
  Receipt Date: 20150707
  Transmission Date: 20151125
  Serious: Yes (Other)
  Sender: FDA-Public Use
  Company Number: GB-TEVA-575331ACC

PATIENT
  Age: 20 Day

DRUGS (3)
  1. SERTRALINE [Suspect]
     Active Substance: SERTRALINE HYDROCHLORIDE
     Indication: BIPOLAR DISORDER
     Dosage: 25 MILLIGRAM DAILY;
     Route: 063
     Dates: start: 20150602
  2. ARIPIPRAZOLE. [Concomitant]
     Active Substance: ARIPIPRAZOLE
     Indication: BIPOLAR DISORDER
     Dosage: 10 MILLIGRAM DAILY;
     Route: 063
     Dates: start: 20150602
  3. LORAZEPAM. [Suspect]
     Active Substance: LORAZEPAM
     Indication: AGITATION
     Route: 063
     Dates: start: 20150602

REACTIONS (1)
  - Jaundice neonatal [Not Recovered/Not Resolved]

NARRATIVE: CASE EVENT DATE: 20150616
